FAERS Safety Report 6128570-6 (Version None)
Quarter: 2009Q1

REPORT INFORMATION
  Report Type: 
  Country: None (occurrence: None)
  Receive Date: 20090323
  Receipt Date: 20090311
  Transmission Date: 20090719
  Serious: No
  Sender: FDA-Public Use
  Company Number: US-B.I. PHARMACEUTICALS,INC./RIDGEFIELD-2009-BP-02191BP

PATIENT
  Sex: Female

DRUGS (1)
  1. COMBIVENT [Suspect]
     Indication: DYSPNOEA
     Dosage: 8PUF
     Route: 055
     Dates: start: 20080101

REACTIONS (2)
  - AGEUSIA [None]
  - WRONG TECHNIQUE IN DRUG USAGE PROCESS [None]
